FAERS Safety Report 14319863 (Version 1)
Quarter: 2017Q4

REPORT INFORMATION
  Report Type: Spontaneous
  Country: US (occurrence: US)
  Receive Date: 20171222
  Receipt Date: 20171222
  Transmission Date: 20180321
  Serious: Yes (Other)
  Sender: FDA-Public Use
  Company Number: US-009507513-1712USA009277

PATIENT
  Sex: Male

DRUGS (8)
  1. METHYLPHENIDATE. [Concomitant]
     Active Substance: METHYLPHENIDATE
  2. EFFEXOR [Concomitant]
     Active Substance: VENLAFAXINE HYDROCHLORIDE
  3. TRAZODONE HYDROCHLORIDE. [Concomitant]
     Active Substance: TRAZODONE HYDROCHLORIDE
  4. LEVETIRACETAM. [Concomitant]
     Active Substance: LEVETIRACETAM
  5. MORPHINE [Concomitant]
     Active Substance: MORPHINE
  6. DEXAMETHASONE. [Concomitant]
     Active Substance: DEXAMETHASONE
  7. KEYTRUDA [Suspect]
     Active Substance: PEMBROLIZUMAB
     Indication: BRAIN NEOPLASM MALIGNANT
     Dosage: 200 MG, EVERY THREE WEEKS
     Route: 042
     Dates: start: 201710, end: 20171211
  8. HYDROCODONE [Concomitant]
     Active Substance: HYDROCODONE

REACTIONS (2)
  - Headache [Unknown]
  - Malignant neoplasm progression [Not Recovered/Not Resolved]

NARRATIVE: CASE EVENT DATE: 2017
